FAERS Safety Report 5482130-9 (Version None)
Quarter: 2007Q4

REPORT INFORMATION
  Report Type: 
  Country: None (occurrence: None)
  Receive Date: 20071011
  Receipt Date: 20071001
  Transmission Date: 20080405
  Serious: Yes (Life-Threatening, Hospitalization)
  Sender: FDA-Public Use
  Company Number: US-JNJFOC-20071000791

PATIENT
  Sex: Male

DRUGS (4)
  1. DURAGESIC-100 [Suspect]
     Indication: PAIN
     Dosage: 2 X 100UG/HR PATCHES
     Route: 062
  2. EFFEXOR [Concomitant]
     Indication: DEPRESSION
     Route: 048
  3. BACLOFEN [Concomitant]
     Indication: MUSCLE SPASMS
     Dosage: EVERY 4-8 HOURS
     Route: 048
  4. AMITRIPTYLINE HCL [Concomitant]
     Indication: SLEEP DISORDER
     Route: 048

REACTIONS (11)
  - BREAKTHROUGH PAIN [None]
  - COLLAPSE OF LUNG [None]
  - CONVULSION [None]
  - DRUG ADMINISTERED AT INAPPROPRIATE SITE [None]
  - FALL [None]
  - GALLBLADDER DISORDER [None]
  - HYPERTENSION [None]
  - INCORRECT DRUG ADMINISTRATION DURATION [None]
  - NAUSEA [None]
  - RENAL FAILURE [None]
  - THROMBOSIS [None]
